FAERS Safety Report 15072807 (Version 1)
Quarter: 2018Q2

REPORT INFORMATION
  Report Type: Spontaneous
  Country: DE (occurrence: DE)
  Receive Date: 20180627
  Receipt Date: 20180627
  Transmission Date: 20180711
  Serious: Yes (Hospitalization)
  Sender: FDA-Public Use
  Company Number: DE-TEVA-2018-DE-912338

PATIENT
  Age: 84 Year
  Sex: Female

DRUGS (8)
  1. ISMN-CT 100MG [Concomitant]
     Dosage: 100 MILLIGRAM, 1-0-0-0
     Route: 065
  2. ACTRAPID [Suspect]
     Active Substance: INSULIN HUMAN
     Dosage: NK IE, TO BZ
     Route: 065
  3. METOBETA COMP [Concomitant]
     Dosage: 100|12.5 MILLIGRAM, 0,5-0-0-0
     Route: 065
  4. METAMIZOL [Concomitant]
     Active Substance: METAMIZOLE SODIUM
     Dosage: NK MG, NEED
     Route: 065
  5. METFORMIN [Suspect]
     Active Substance: METFORMIN HYDROCHLORIDE
     Dosage: 1000 MILLIGRAM, 1-0-0.5-0
     Route: 065
  6. HUMALOG [Suspect]
     Active Substance: INSULIN LISPRO
     Dosage: NK IE, TO BZ
     Route: 065
  7. SIMVASTATIN. [Concomitant]
     Active Substance: SIMVASTATIN
     Dosage: 40 MILLIGRAM, 0-0-0.5-0
     Route: 065
  8. LEVEMIR [Concomitant]
     Active Substance: INSULIN DETEMIR
     Dosage: 18 IE, 0-0-0-1
     Route: 065

REACTIONS (2)
  - Hypoglycaemia [Unknown]
  - Drug administration error [Unknown]

NARRATIVE: CASE EVENT DATE: 20170314
